FAERS Safety Report 14854293 (Version 4)
Quarter: 2018Q2

REPORT INFORMATION
  Report Type: Spontaneous
  Country: JP (occurrence: JP)
  Receive Date: 20180507
  Receipt Date: 20180621
  Transmission Date: 20180711
  Serious: Yes (Hospitalization, Other)
  Sender: FDA-Public Use
  Company Number: PHJP2018JP009790

PATIENT
  Age: 40 Year
  Sex: Female

DRUGS (2)
  1. REVOLADE TAB [Suspect]
     Active Substance: ELTROMBOPAG
     Indication: IMMUNE THROMBOCYTOPENIC PURPURA
     Dosage: 50 MG, QD
     Route: 048
  2. PREDNISOLONE. [Suspect]
     Active Substance: PREDNISOLONE
     Indication: IMMUNE THROMBOCYTOPENIC PURPURA
     Dosage: 30 MG, UNK
     Route: 065

REACTIONS (7)
  - Arterial thrombosis [Unknown]
  - Cardiac dysfunction [Unknown]
  - Glomerular vascular disorder [Unknown]
  - Acute kidney injury [Unknown]
  - Renal infarct [Recovering/Resolving]
  - Abdominal pain [Unknown]
  - Infarction [Unknown]
